FAERS Safety Report 15732517 (Version 6)
Quarter: 2019Q2

REPORT INFORMATION
  Report Type: Spontaneous
  Country: US (occurrence: US)
  Receive Date: 20181217
  Receipt Date: 20190617
  Transmission Date: 20190711
  Serious: Yes (Hospitalization)
  Sender: FDA-Public Use
  Company Number: US-VIFOR (INTERNATIONAL) INC.-VIT-2018-04917

PATIENT
  Age: 77 Year
  Sex: Male
  Weight: 98.52 kg

DRUGS (21)
  1. VELTASSA [Suspect]
     Active Substance: PATIROMER
     Dates: start: 201901, end: 2019
  2. ULORIC [Concomitant]
     Active Substance: FEBUXOSTAT
  3. REMERON [Concomitant]
     Active Substance: MIRTAZAPINE
     Route: 048
  4. FERROUS SULFATE. [Concomitant]
     Active Substance: FERROUS SULFATE
     Dosage: WITH BREAKFAST.
     Route: 048
  5. LIPITOR [Concomitant]
     Active Substance: ATORVASTATIN CALCIUM
     Route: 048
  6. PRINIVIL [Concomitant]
     Active Substance: LISINOPRIL
     Route: 048
  7. TRADJENTA [Concomitant]
     Active Substance: LINAGLIPTIN
     Route: 048
  8. DEMADEX [Concomitant]
     Active Substance: TORSEMIDE
  9. AMARYL [Concomitant]
     Active Substance: GLIMEPIRIDE
     Dosage: 2 MG IN AM AND 1 MG IN PM.
     Route: 048
  10. VELTASSA [Suspect]
     Active Substance: PATIROMER
     Indication: HYPERKALAEMIA
     Route: 048
     Dates: start: 20180523, end: 201901
  11. TRAMADOL HCL [Concomitant]
     Active Substance: TRAMADOL HYDROCHLORIDE
  12. TIMOLOL MALEATE. [Concomitant]
     Active Substance: TIMOLOL MALEATE
     Dosage: 1 DROP INTO BOTH EYES
  13. PROVENTIL [Concomitant]
     Active Substance: ALBUTEROL
     Dosage: 2.5 MG/ML
  14. DULERA [Concomitant]
     Active Substance: FORMOTEROL FUMARATE DIHYDRATE\MOMETASONE FUROATE
     Dosage: 100-5 MCG/ACT
  15. MULTIVITAMINS [Concomitant]
     Active Substance: VITAMINS
     Route: 048
  16. NORVASC [Concomitant]
     Active Substance: AMLODIPINE BESYLATE
     Route: 048
     Dates: start: 20180110
  17. FLOMAX [Concomitant]
     Active Substance: TAMSULOSIN HYDROCHLORIDE
     Route: 048
  18. ASPIRIN ADULT LOW STRENGTH [Concomitant]
     Active Substance: ASPIRIN
     Route: 048
  19. CALCITRIOL. [Concomitant]
     Active Substance: CALCITRIOL
  20. ZYLOPRIM [Concomitant]
     Active Substance: ALLOPURINOL
  21. ZESTRIL [Concomitant]
     Active Substance: LISINOPRIL
     Route: 048

REACTIONS (13)
  - Hypercapnia [Unknown]
  - Sleep apnoea syndrome [Unknown]
  - Renal failure [Unknown]
  - Hypoglycaemia [Unknown]
  - Cardiac disorder [Unknown]
  - Obesity [Unknown]
  - Chronic obstructive pulmonary disease [Unknown]
  - Dyspnoea [Unknown]
  - Acute respiratory failure [Unknown]
  - Oedema peripheral [Unknown]
  - Faeces hard [Unknown]
  - Acute kidney injury [Unknown]
  - Hypoxia [Unknown]

NARRATIVE: CASE EVENT DATE: 201901
